FAERS Safety Report 24074240 (Version 1)
Quarter: 2024Q3

REPORT INFORMATION
  Report Type: Report from Study
  Country: AT (occurrence: AT)
  Receive Date: 20240710
  Receipt Date: 20240710
  Transmission Date: 20241017
  Serious: No
  Sender: PIERRE FABRE MEDICAMENT
  Company Number: AT-AstraZeneca-2023A108747-1

PATIENT
  Sex: Female

DRUGS (1)
  1. PROPRANOLOL HYDROCHLORIDE [Suspect]
     Active Substance: PROPRANOLOL HYDROCHLORIDE
     Indication: Infantile haemangioma
     Dosage: 2 MG/KG BODY WEIGHT
     Route: 048

REACTIONS (3)
  - Ulcerated haemangioma [Unknown]
  - Product administered to patient of inappropriate age [Unknown]
  - Off label use [Unknown]
